FAERS Safety Report 24638038 (Version 3)
Quarter: 2024Q4

REPORT INFORMATION
  Report Type: Spontaneous
  Country: US (occurrence: US)
  Receive Date: 20241119
  Receipt Date: 20241212
  Transmission Date: 20250115
  Serious: Yes (Death)
  Sender: PFIZER
  Company Number: US-PFIZER INC-202400303442

PATIENT
  Age: 89 Year
  Sex: Male

DRUGS (1)
  1. VYNDAMAX [Suspect]
     Active Substance: TAFAMIDIS
     Indication: Cardiac amyloidosis
     Dosage: DOSAGE: 61MG
     Dates: start: 202112, end: 202409

REACTIONS (2)
  - Cardiac disorder [Fatal]
  - Fall [Unknown]

NARRATIVE: CASE EVENT DATE: 20240901
